FAERS Safety Report 9751192 (Version 1)
Quarter: 2013Q4

REPORT INFORMATION
  Report Type: Spontaneous
  Country: US (occurrence: US)
  Receive Date: 20131212
  Receipt Date: 20131212
  Transmission Date: 20140711
  Serious: No
  Sender: FDA-Public Use
  Company Number: US-BIOGENIDEC-2013BI096313

PATIENT
  Sex: Female
  Weight: 52 kg

DRUGS (6)
  1. TECFIDERA [Suspect]
     Indication: PRODUCT USED FOR UNKNOWN INDICATION
     Route: 048
  2. ASA LOW STR EC [Concomitant]
  3. LYRICA [Concomitant]
  4. BACLOFEN [Concomitant]
  5. PREVACID [Concomitant]
  6. BYSTOLIC [Concomitant]

REACTIONS (2)
  - Nausea [Unknown]
  - Vomiting [Unknown]
